FAERS Safety Report 4428890-7 (Version None)
Quarter: 2004Q3

REPORT INFORMATION
  Report Type: 
  Country: None (occurrence: None)
  Receive Date: 20040817
  Receipt Date: 20040812
  Transmission Date: 20050211
  Serious: Yes (Other)
  Sender: FDA-Public Use
  Company Number: 002372

PATIENT
  Sex: Female

DRUGS (6)
  1. MEDROXYPROGESTERONE ACETATE [Suspect]
  2. PREMARIN [Suspect]
  3. PROVERA [Suspect]
  4. ESTROGENS () [Suspect]
  5. ORTHO-PREFEST [Suspect]
  6. PREMPHASE (PREMARIN;CYCRIN 14/14) [Suspect]

REACTIONS (1)
  - BREAST CANCER [None]
